FAERS Safety Report 21396201 (Version 1)
Quarter: 2022Q3

REPORT INFORMATION
  Report Type: Spontaneous
  Country: US (occurrence: US)
  Receive Date: 20220930
  Receipt Date: 20220930
  Transmission Date: 20221027
  Serious: Yes (Hospitalization, Other)
  Sender: FDA-Public Use
  Company Number: US-SLATE RUN PHARMACEUTICALS-22US001346

PATIENT

DRUGS (9)
  1. BUPROPION HYDROCHLORIDE [Interacting]
     Active Substance: BUPROPION HYDROCHLORIDE
     Indication: Product used for unknown indication
     Dosage: 450 MILLIGRAM, QD
  2. DESVENLAFAXINE SUCCINATE [Interacting]
     Active Substance: DESVENLAFAXINE SUCCINATE
     Indication: Product used for unknown indication
     Dosage: 200 MILLIGRAM, QD
  3. YOHIMBINE [Interacting]
     Active Substance: YOHIMBINE
     Indication: Sexual dysfunction
     Dosage: 1 DOSAGE FORM, SINGLE
     Route: 048
  4. CLONIDINE [Interacting]
     Active Substance: CLONIDINE
     Indication: Anxiety
     Dosage: 0.1 MILLIGRAM, TID
  5. BUPRENORPHINE AND NALOXONE [Concomitant]
     Active Substance: BUPRENORPHINE HYDROCHLORIDE\NALOXONE HYDROCHLORIDE
     Indication: Product used for unknown indication
     Dosage: 1.5 DOSAGE FORM, QD
  6. LISDEXAMFETAMINE [Concomitant]
     Active Substance: LISDEXAMFETAMINE
     Indication: Product used for unknown indication
     Dosage: 40 MILLIGRAM, EVENING
  7. LISDEXAMFETAMINE [Concomitant]
     Active Substance: LISDEXAMFETAMINE
     Dosage: 60 MILLIGRAM, MORNING
  8. TRAZODONE [Concomitant]
     Active Substance: TRAZODONE HYDROCHLORIDE
     Indication: Product used for unknown indication
     Dosage: 100 MILLIGRAM, BEDTIME
  9. LEVONORGESTREL [Concomitant]
     Active Substance: LEVONORGESTREL
     Indication: Product used for unknown indication
     Route: 015

REACTIONS (19)
  - Hypertensive emergency [Unknown]
  - Feeling hot [Unknown]
  - Fall [Unknown]
  - Facial paralysis [Not Recovered/Not Resolved]
  - Basal ganglia haemorrhage [Unknown]
  - Cerebral mass effect [Unknown]
  - Subarachnoid haemorrhage [Unknown]
  - Hemiparesis [Not Recovered/Not Resolved]
  - Toxicity to various agents [Unknown]
  - Potentiating drug interaction [Unknown]
  - Aphasia [Not Recovered/Not Resolved]
  - Flushing [Unknown]
  - Somnolence [Unknown]
  - Nausea [Unknown]
  - Vomiting [Unknown]
  - Feeling jittery [Unknown]
  - Hypersensitivity [Unknown]
  - Anxiety [Unknown]
  - Off label use [Unknown]
